FAERS Safety Report 8492599-3 (Version None)
Quarter: 2012Q3

REPORT INFORMATION
  Report Type: 
  Country: None (occurrence: None)
  Receive Date: 20120706
  Receipt Date: 20120625
  Transmission Date: 20120928
  Serious: Yes (Other)
  Sender: FDA-Public Use
  Company Number: US-ELI_LILLY_AND_COMPANY-US201206009485

PATIENT
  Age: 55 Year
  Sex: Female

DRUGS (5)
  1. LEVOTHYROXINE SODIUM [Concomitant]
  2. METFORMIN HCL [Concomitant]
  3. PRAVASTATIN [Concomitant]
  4. CYMBALTA [Suspect]
     Indication: DEPRESSION
     Dosage: 60 MG, QD
     Dates: start: 20111201, end: 20120620
  5. LISINOPRIL AND HYDROCHLOROTHIAZIDE [Concomitant]

REACTIONS (16)
  - DIZZINESS [None]
  - DRUG WITHDRAWAL SYNDROME [None]
  - INCREASED APPETITE [None]
  - IRRITABILITY [None]
  - ANGER [None]
  - SUICIDAL IDEATION [None]
  - WEIGHT DECREASED [None]
  - PERSONALITY CHANGE [None]
  - PANIC ATTACK [None]
  - AGITATION [None]
  - LETHARGY [None]
  - BURNING SENSATION [None]
  - CRYING [None]
  - ANXIETY [None]
  - DIARRHOEA [None]
  - NEGATIVE THOUGHTS [None]
